FAERS Safety Report 14631008 (Version 1)
Quarter: 2018Q1

REPORT INFORMATION
  Report Type: Report from Study
  Country: CA (occurrence: CA)
  Receive Date: 20180313
  Receipt Date: 20180313
  Transmission Date: 20180509
  Serious: Yes (Other)
  Sender: FDA-Public Use
  Company Number: CA-GILEAD-2017-0307493

PATIENT
  Age: 46 Year
  Sex: Male

DRUGS (12)
  1. SEROQUEL [Concomitant]
     Active Substance: QUETIAPINE FUMARATE
  2. PERINDOPRIL [Concomitant]
     Active Substance: PERINDOPRIL
  3. SOFOSBUVIR [Suspect]
     Active Substance: SOFOSBUVIR
     Indication: CHRONIC HEPATITIS C
     Dosage: 400 MG, UNK
     Route: 048
     Dates: start: 20160816
  4. LASIX [Concomitant]
     Active Substance: FUROSEMIDE
  5. RIBAVIRIN. [Suspect]
     Active Substance: RIBAVIRIN
     Indication: CHRONIC HEPATITIS C
     Dosage: UNK
     Route: 048
     Dates: start: 20160816
  6. INSULIN [Concomitant]
     Active Substance: INSULIN NOS
  7. DILAUDID [Concomitant]
     Active Substance: HYDROMORPHONE HYDROCHLORIDE
  8. NADOLOL. [Concomitant]
     Active Substance: NADOLOL
  9. PANTOLOC                           /01263201/ [Concomitant]
     Active Substance: PANTOPRAZOLE SODIUM
  10. TRAZODONE [Concomitant]
     Active Substance: TRAZODONE HYDROCHLORIDE
  11. INVOKANA [Concomitant]
     Active Substance: CANAGLIFLOZIN
  12. VENTOLIN [Concomitant]
     Active Substance: ALBUTEROL SULFATE

REACTIONS (3)
  - Hepatic cirrhosis [Unknown]
  - Treatment failure [Unknown]
  - Hepatic encephalopathy [Unknown]
